FAERS Safety Report 24815990 (Version 1)
Quarter: 2025Q1

REPORT INFORMATION
  Report Type: Spontaneous
  Country: US (occurrence: US)
  Receive Date: 20250107
  Receipt Date: 20250107
  Transmission Date: 20250409
  Serious: No
  Sender: JOHNSON AND JOHNSON
  Company Number: US-KENVUE-20241207321

PATIENT
  Sex: Female

DRUGS (4)
  1. TYLENOL EXTRA STRENGTH [Suspect]
     Active Substance: ACETAMINOPHEN
     Indication: Migraine
     Dates: start: 20220810
  2. NURTEC ODT [Concomitant]
     Active Substance: RIMEGEPANT SULFATE
     Indication: Migraine
     Dates: start: 202112, end: 202201
  3. NURTEC ODT [Concomitant]
     Active Substance: RIMEGEPANT SULFATE
     Dates: start: 20220122, end: 20220803
  4. IBUPROFEN [Concomitant]
     Active Substance: IBUPROFEN
     Indication: Migraine

REACTIONS (1)
  - Exposure during pregnancy [Unknown]

NARRATIVE: CASE EVENT DATE: 20220101
